FAERS Safety Report 5094316-6 (Version None)
Quarter: 2006Q3

REPORT INFORMATION
  Report Type: 
  Country: None (occurrence: None)
  Receive Date: 20060830
  Receipt Date: 20060830
  Transmission Date: 20061208
  Serious: Yes (Life-Threatening, Other)
  Sender: FDA-Public Use
  Company Number: None

PATIENT
  Age: 46 Year
  Sex: Female
  Weight: 73.0291 kg

DRUGS (4)
  1. KETEK [Suspect]
     Indication: BRONCHITIS
     Dosage: PACK  5 DAY COURSE PO
     Route: 048
     Dates: start: 20050602, end: 20050606
  2. KETEK [Suspect]
     Indication: SINUSITIS
     Dosage: PACK  5 DAY COURSE PO
     Route: 048
     Dates: start: 20050602, end: 20050606
  3. KETEK [Suspect]
     Indication: BRONCHITIS
     Dosage: PACK  5 DAY COURSE PO
     Route: 048
     Dates: start: 20060518, end: 20060523
  4. KETEK [Suspect]
     Indication: SINUSITIS
     Dosage: PACK  5 DAY COURSE PO
     Route: 048
     Dates: start: 20060518, end: 20060523

REACTIONS (16)
  - BILIARY TRACT DISORDER [None]
  - BRONCHITIS [None]
  - DYSPEPSIA [None]
  - FATIGUE [None]
  - FEELING ABNORMAL [None]
  - HEPATIC FAILURE [None]
  - HEPATOCELLULAR DAMAGE [None]
  - HYPERSENSITIVITY [None]
  - HYPOTRICHOSIS [None]
  - INCREASED TENDENCY TO BRUISE [None]
  - JAUNDICE [None]
  - MUSCLE SPASMS [None]
  - PIGMENTATION DISORDER [None]
  - PRURITUS [None]
  - SINUSITIS [None]
  - VARICOSE VEIN [None]
